FAERS Safety Report 14812924 (Version 1)
Quarter: 2018Q2

REPORT INFORMATION
  Report Type: Spontaneous
  Country: PL (occurrence: PL)
  Receive Date: 20180426
  Receipt Date: 20180426
  Transmission Date: 20180711
  Serious: Yes (Other)
  Sender: FDA-Public Use
  Company Number: PL-BRISTOL-MYERS SQUIBB COMPANY-BMS-2017-030951

PATIENT
  Age: 47 Year
  Sex: Female

DRUGS (1)
  1. DASATINIB. [Suspect]
     Active Substance: DASATINIB
     Indication: CHRONIC MYELOID LEUKAEMIA
     Dosage: 100 MG, QD
     Route: 065
     Dates: start: 2016

REACTIONS (5)
  - Ulcer [Unknown]
  - Microcytic anaemia [Recovered/Resolved]
  - Thrombocytopenia [Recovering/Resolving]
  - Iron deficiency [Unknown]
  - Inflammation [Unknown]
